FAERS Safety Report 25199853 (Version 1)
Quarter: 2025Q2

REPORT INFORMATION
  Report Type: Spontaneous
  Country: BR (occurrence: BR)
  Receive Date: 20250415
  Receipt Date: 20250415
  Transmission Date: 20250717
  Serious: Yes (Disabling, Other)
  Sender: MYLAN
  Company Number: BR-MYLANLABS-2025M1030455

PATIENT
  Sex: Male
  Weight: 60 kg

DRUGS (2)
  1. ZOLOFT [Suspect]
     Active Substance: SERTRALINE HYDROCHLORIDE
     Indication: Obsessive-compulsive disorder
     Dosage: 25 MILLIGRAM, QD (HALF A TABLET, ONCE DAILY)
     Dates: start: 2020, end: 2023
  2. ZOLOFT [Suspect]
     Active Substance: SERTRALINE HYDROCHLORIDE
     Dosage: 25 MILLIGRAM, QD (HALF A TABLET, ONCE DAILY)

REACTIONS (16)
  - Emotional distress [Not Recovered/Not Resolved]
  - Mental impairment [Recovered/Resolved]
  - Discomfort [Not Recovered/Not Resolved]
  - Respiratory disorder [Not Recovered/Not Resolved]
  - Male orgasmic disorder [Unknown]
  - Muscle contracture [Recovered/Resolved]
  - Mood swings [Recovered/Resolved]
  - Crying [Recovered/Resolved]
  - Insomnia [Recovered/Resolved]
  - Nightmare [Not Recovered/Not Resolved]
  - Libido decreased [Unknown]
  - Akathisia [Recovered/Resolved]
  - Headache [Unknown]
  - Fatigue [Recovered/Resolved]
  - Anxiety [Unknown]
  - Wrong technique in product usage process [Unknown]

NARRATIVE: CASE EVENT DATE: 20230101
